FAERS Safety Report 18537518 (Version 2)
Quarter: 2020Q4

REPORT INFORMATION
  Report Type: Other
  Country: CA (occurrence: CA)
  Receive Date: 20201124
  Receipt Date: 20201204
  Transmission Date: 20210114
  Serious: Yes (Hospitalization, Other)
  Sender: FDA-Public Use
  Company Number: CA-APOTEX-2020AP022124

PATIENT
  Age: 55 Year
  Sex: Female

DRUGS (5)
  1. METHADONE [Suspect]
     Active Substance: METHADONE HYDROCHLORIDE
     Indication: PELVIC PAIN
     Dosage: 15 MILLIGRAM, TID
     Route: 065
  2. GABAPENTIN. [Suspect]
     Active Substance: GABAPENTIN
     Indication: PELVIC PAIN
     Dosage: 4 MILLIGRAM, TID
     Route: 048
  3. SUFENTANIL CITRATE. [Suspect]
     Active Substance: SUFENTANIL CITRATE
     Indication: PELVIC PAIN
     Dosage: UNK
     Route: 060
  4. KETAMINE [KETAMINE HYDROCHLORIDE] [Suspect]
     Active Substance: KETAMINE HYDROCHLORIDE
     Indication: PELVIC PAIN
     Dosage: 500 MILLIGRAM, QD
     Route: 058
  5. HYDROMORPHONE HCL [Suspect]
     Active Substance: HYDROMORPHONE HYDROCHLORIDE
     Indication: PELVIC PAIN
     Dosage: 12.5 MILLIGRAM
     Route: 058

REACTIONS (2)
  - Delirium [Unknown]
  - Drug ineffective [Unknown]
